FAERS Safety Report 7103349-7 (Version None)
Quarter: 2010Q4

REPORT INFORMATION
  Report Type: 
  Country: None (occurrence: None)
  Receive Date: 20101115
  Receipt Date: 20101104
  Transmission Date: 20110411
  Serious: Yes (Other)
  Sender: FDA-Public Use
  Company Number: DE-B.I. PHARMACEUTICALS,INC./RIDGEFIELD-2010-DE-06057DE

PATIENT
  Age: 34 Year
  Sex: Female

DRUGS (4)
  1. VIRAMUNE [Suspect]
     Dosage: 400 MG
     Dates: start: 19971008
  2. EPIVIR [Concomitant]
     Dates: start: 19971008
  3. ZERIT [Concomitant]
     Dates: start: 19971008, end: 20051130
  4. RETROVIR [Concomitant]
     Dates: start: 20051201

REACTIONS (2)
  - ABORTION SPONTANEOUS [None]
  - DRUG EXPOSURE DURING PREGNANCY [None]
